FAERS Safety Report 8966958 (Version 1)
Quarter: 2012Q4

REPORT INFORMATION
  Report Type: 
  Country: FR (occurrence: FR)
  Receive Date: 20121217
  Receipt Date: 20121217
  Transmission Date: 20130627
  Serious: Yes (Hospitalization)
  Sender: FDA-Public Use
  Company Number: PHHY2012FR115745

PATIENT
  Age: 62 Year
  Sex: Male

DRUGS (3)
  1. SANDIMMUN [Suspect]
     Dosage: UNK UKN, UNK
     Route: 042
     Dates: start: 20120607, end: 20120614
  2. NEORAL [Suspect]
     Dosage: UNK UKN, UNK
     Route: 048
     Dates: start: 20120531, end: 20120607
  3. EUPANTOL [Suspect]
     Dosage: UNK UKN, UNK
     Route: 042
     Dates: start: 20120608, end: 20120611

REACTIONS (4)
  - Tremor [Recovered/Resolved]
  - Confusional state [Recovered/Resolved]
  - Disorientation [Recovered/Resolved]
  - Overdose [Unknown]
